FAERS Safety Report 25154642 (Version 1)
Quarter: 2025Q2

REPORT INFORMATION
  Report Type: Spontaneous
  Country: JP (occurrence: JP)
  Receive Date: 20250403
  Receipt Date: 20250403
  Transmission Date: 20250717
  Serious: Yes (Life-Threatening, Hospitalization)
  Sender: MYLAN
  Company Number: JP-MYLANLABS-2025M1027763

PATIENT
  Age: 21 Year
  Sex: Female

DRUGS (18)
  1. SOLANAX [Interacting]
     Active Substance: ALPRAZOLAM
     Indication: Intentional overdose
  2. SOLANAX [Interacting]
     Active Substance: ALPRAZOLAM
     Indication: Schizophrenia
  3. DEXTROMETHORPHAN HYDROBROMIDE [Interacting]
     Active Substance: DEXTROMETHORPHAN HYDROBROMIDE
     Indication: Intentional overdose
  4. TRIAZOLAM [Interacting]
     Active Substance: TRIAZOLAM
     Indication: Intentional overdose
  5. TRIAZOLAM [Interacting]
     Active Substance: TRIAZOLAM
     Indication: Schizophrenia
  6. RISPERIDONE [Interacting]
     Active Substance: RISPERIDONE
     Indication: Intentional overdose
  7. RISPERIDONE [Interacting]
     Active Substance: RISPERIDONE
     Indication: Schizophrenia
  8. DULOXETINE [Interacting]
     Active Substance: DULOXETINE
     Indication: Intentional overdose
  9. DULOXETINE [Interacting]
     Active Substance: DULOXETINE
     Indication: Schizophrenia
  10. BROTIZOLAM [Interacting]
     Active Substance: BROTIZOLAM
     Indication: Intentional overdose
  11. BROTIZOLAM [Interacting]
     Active Substance: BROTIZOLAM
     Indication: Schizophrenia
  12. DIAZEPAM [Interacting]
     Active Substance: DIAZEPAM
     Indication: Generalised tonic-clonic seizure
  13. MIDAZOLAM [Interacting]
     Active Substance: MIDAZOLAM
     Indication: Status epilepticus
     Dosage: CONTINUOUS
  14. PROPOFOL [Interacting]
     Active Substance: PROPOFOL
     Indication: Status epilepticus
  15. NALOXONE [Suspect]
     Active Substance: NALOXONE
     Indication: Toxicity to various agents
  16. NOREPINEPHRINE [Concomitant]
     Active Substance: NOREPINEPHRINE
     Indication: Hypotension
  17. FENTANYL [Concomitant]
     Active Substance: FENTANYL
     Indication: Endotracheal intubation
  18. ACTIVATED CHARCOAL [Concomitant]
     Active Substance: ACTIVATED CHARCOAL
     Indication: Toxicity to various agents

REACTIONS (17)
  - Toxicity to various agents [Recovered/Resolved]
  - Generalised tonic-clonic seizure [Recovered/Resolved]
  - Coma [Recovered/Resolved]
  - Hypotension [Recovered/Resolved]
  - Tachycardia [Recovered/Resolved]
  - Oxygen saturation decreased [Recovered/Resolved]
  - Metabolic acidosis [Recovered/Resolved]
  - Status epilepticus [Recovered/Resolved]
  - Atelectasis [Recovered/Resolved]
  - Hyperthermia [Recovered/Resolved]
  - Drug interaction [Recovered/Resolved]
  - Suicide attempt [Recovered/Resolved]
  - Flushing [Recovered/Resolved]
  - Hyperhidrosis [Recovered/Resolved]
  - Quadriplegia [Recovered/Resolved]
  - Mydriasis [Recovered/Resolved]
  - Intentional overdose [Recovered/Resolved]
